FAERS Safety Report 8853804 (Version 2)
Quarter: 2012Q4

REPORT INFORMATION
  Report Type: Report from Study
  Country: CA (occurrence: CA)
  Receive Date: 20121022
  Receipt Date: 20121107
  Transmission Date: 20130627
  Serious: Yes (Life-Threatening, Hospitalization)
  Sender: FDA-Public Use
  Company Number: CA-JNJFOC-20121009008

PATIENT
  Age: 39 Year
  Sex: Female

DRUGS (8)
  1. STELARA [Suspect]
     Indication: PSORIASIS
     Route: 058
     Dates: start: 20110804
  2. STELARA [Suspect]
     Indication: PSORIASIS
     Route: 058
     Dates: start: 201209
  3. NORVASC [Concomitant]
     Indication: HYPERTENSION
  4. MAVIK [Concomitant]
     Indication: HYPERTENSION
  5. FUROSEMIDE [Concomitant]
     Indication: HYPERTENSION
  6. LOPRESSOR [Concomitant]
     Indication: HYPERTENSION
  7. HYDRALAZINE [Concomitant]
     Indication: HYPERTENSION
  8. ROSUVASTATIN [Concomitant]
     Indication: HYPERTENSION

REACTIONS (1)
  - Myocardial infarction [Recovering/Resolving]
